FAERS Safety Report 19394479 (Version 3)
Quarter: 2021Q3

REPORT INFORMATION
  Report Type: Spontaneous
  Country: JP (occurrence: JP)
  Receive Date: 20210609
  Receipt Date: 20210708
  Transmission Date: 20211014
  Serious: Yes (Other)
  Sender: FDA-Public Use
  Company Number: JP-PFM-2021-05549

PATIENT

DRUGS (2)
  1. HEMANGIOL [Suspect]
     Active Substance: PROPRANOLOL HYDROCHLORIDE
     Indication: OFF LABEL USE
  2. HEMANGIOL [Suspect]
     Active Substance: PROPRANOLOL HYDROCHLORIDE
     Indication: HAEMANGIOMA OF SKIN
     Dosage: UNK
     Route: 048

REACTIONS (3)
  - Croup infectious [Unknown]
  - Product use in unapproved indication [Unknown]
  - Off label use [Unknown]
